FAERS Safety Report 16725024 (Version 4)
Quarter: 2019Q3

REPORT INFORMATION
  Report Type: Spontaneous
  Country: US (occurrence: US)
  Receive Date: 20190821
  Receipt Date: 20190906
  Transmission Date: 20191005
  Serious: Yes (Other)
  Sender: FDA-Public Use
  Company Number: US-PFIZER INC-2019355078

PATIENT
  Age: 71 Year
  Sex: Male

DRUGS (2)
  1. VANCOMYCIN HCL [Suspect]
     Active Substance: VANCOMYCIN HYDROCHLORIDE
     Indication: STAPHYLOCOCCAL OSTEOMYELITIS
     Dosage: UNK
  2. VANCOMYCIN HCL [Suspect]
     Active Substance: VANCOMYCIN HYDROCHLORIDE
     Indication: DECUBITUS ULCER
     Dosage: 1.5 G, 2X/DAY (EVERY 12 HOURS)
     Route: 042

REACTIONS (4)
  - Petechiae [Unknown]
  - Thrombocytopenia [Recovered/Resolved]
  - Gastrointestinal haemorrhage [Unknown]
  - Increased tendency to bruise [Unknown]
